FAERS Safety Report 17324875 (Version 1)
Quarter: 2020Q1

REPORT INFORMATION
  Report Type: Spontaneous
  Country: US (occurrence: US)
  Receive Date: 20200125
  Receipt Date: 20200125
  Transmission Date: 20200409
  Serious: Yes (Other)
  Sender: FDA-Public Use
  Company Number: None

PATIENT
  Age: 66 Year
  Sex: Female
  Weight: 59.4 kg

DRUGS (9)
  1. CLARITIN [Concomitant]
     Active Substance: LORATADINE
  2. VIT D 5000 IU PRN [Concomitant]
  3. ADVIL PRN [Concomitant]
  4. CALCIUM 1200MG [Concomitant]
  5. ACETOPHENAMEN PRN [Concomitant]
  6. CRESTOR 5MG HS [Concomitant]
  7. BONE UP PRN [Concomitant]
  8. METFORMIN XR 1500MG [Concomitant]
  9. PIQRAY [Suspect]
     Active Substance: ALPELISIB
     Indication: BREAST CANCER METASTATIC
     Dosage: ?          QUANTITY:2 TABLET(S);?
     Route: 048
     Dates: start: 20191109, end: 20200122

REACTIONS (4)
  - Bone pain [None]
  - Myalgia [None]
  - Headache [None]
  - Blood glucose decreased [None]

NARRATIVE: CASE EVENT DATE: 20200124
